FAERS Safety Report 13284167 (Version 1)
Quarter: 2017Q1

REPORT INFORMATION
  Report Type: Spontaneous
  Country: US (occurrence: US)
  Receive Date: 20170301
  Receipt Date: 20170301
  Transmission Date: 20170428
  Serious: No
  Sender: FDA-Public Use
  Company Number: US-INSYS THERAPEUTICS, INC-INS201607-000333

PATIENT
  Age: 50 Year
  Sex: Female

DRUGS (2)
  1. HYSINGLA ER [Concomitant]
     Active Substance: HYDROCODONE BITARTRATE
  2. SUBSYS [Suspect]
     Active Substance: FENTANYL
     Indication: PANCREATITIS CHRONIC
     Route: 060
     Dates: start: 20160505

REACTIONS (1)
  - Blood creatine phosphokinase increased [Unknown]

NARRATIVE: CASE EVENT DATE: 20160701
